FAERS Safety Report 9215312 (Version 2)
Quarter: 2013Q3

REPORT INFORMATION
  Report Type: Report from Study
  Country: US (occurrence: US)
  Receive Date: 20130405
  Receipt Date: 20130718
  Transmission Date: 20140515
  Serious: Yes (Hospitalization, Other)
  Sender: FDA-Public Use
  Company Number: US-ABBOTT-13P-163-1069949-00

PATIENT
  Age: 52 Year
  Sex: Female
  Weight: 66 kg

DRUGS (11)
  1. HUMIRA [Suspect]
     Indication: RHEUMATOID ARTHRITIS
     Dates: start: 200906, end: 201112
  2. HUMIRA [Suspect]
     Dates: start: 20130313
  3. RITUXAN [Suspect]
     Indication: PRODUCT USED FOR UNKNOWN INDICATION
     Dosage: STUDY
     Dates: start: 201201, end: 201201
  4. RITUXAN [Suspect]
     Dosage: STUDY
     Dates: start: 201206, end: 201206
  5. ZOSYN [Suspect]
     Indication: PRODUCT USED FOR UNKNOWN INDICATION
     Dosage: 3.375 GRAM/50ML IN D5W/50ML
     Route: 042
     Dates: start: 201208
  6. METHOTREXATE [Suspect]
     Indication: RHEUMATOID ARTHRITIS
     Route: 048
     Dates: end: 20120807
  7. MELOXICAM [Suspect]
     Indication: OSTEOARTHRITIS
  8. VANCOMYCIN [Suspect]
     Indication: PRODUCT USED FOR UNKNOWN INDICATION
  9. TRIAMTERENE AND HYDROCHLOROTHIAZID [Concomitant]
     Indication: BLOOD PRESSURE
  10. XANAX [Concomitant]
     Indication: ANXIETY
     Route: 048
  11. PREDNISONE [Concomitant]
     Indication: RHEUMATOID ARTHRITIS
     Dosage: WEEKLY AS NEEDED

REACTIONS (14)
  - Febrile neutropenia [Not Recovered/Not Resolved]
  - Leukopenia [Unknown]
  - Agranulocytosis [Unknown]
  - Diarrhoea [Unknown]
  - Injection site erythema [Unknown]
  - Injection site warmth [Unknown]
  - Oropharyngeal pain [Unknown]
  - Pain in jaw [Unknown]
  - Upper-airway cough syndrome [Unknown]
  - Sinus congestion [Unknown]
  - Sinusitis [Unknown]
  - Malaise [Unknown]
  - Parotitis [Unknown]
  - Metrorrhagia [Not Recovered/Not Resolved]
